FAERS Safety Report 8818041 (Version 2)
Quarter: 2012Q4

REPORT INFORMATION
  Report Type: Report from Study
  Country: JP (occurrence: JP)
  Receive Date: 20121001
  Receipt Date: 20121029
  Transmission Date: 20130627
  Serious: Yes (Life-Threatening, Disabling)
  Sender: FDA-Public Use
  Company Number: JP-PFIZER INC-2012240881

PATIENT
  Age: 72 Year
  Sex: Male

DRUGS (8)
  1. AMLODIPINE BESILATE [Suspect]
     Indication: HYPERTENSION
     Dosage: 2.5 mg, 2x/day
     Route: 048
     Dates: start: 20070219, end: 20120110
  2. AMLODIPINE BESILATE [Suspect]
     Dosage: 10 mg daily
     Route: 048
     Dates: start: 20120111, end: 20120516
  3. DIOVAN [Concomitant]
     Indication: HYPERTENSION
     Dosage: 80 mg daily
     Route: 048
  4. TALION [Concomitant]
     Indication: HYPERTENSION
     Dosage: 20 mg daily
     Route: 048
  5. SULPIRIDE [Concomitant]
     Indication: GASTRITIS
     Dosage: UNK
     Route: 048
  6. FAMOTIDINE [Concomitant]
     Indication: CHRONIC GASTRITIS
     Dosage: UNK
     Route: 048
  7. BAYASPIRIN [Concomitant]
     Indication: THROMBOSIS
     Dosage: UNK
     Route: 048
  8. DEPAS [Concomitant]
     Indication: SLEEP LOSS
     Dosage: UNK
     Route: 048

REACTIONS (1)
  - Renal failure acute [Unknown]
